FAERS Safety Report 9163458 (Version 1)
Quarter: 2013Q1

REPORT INFORMATION
  Report Type: Spontaneous
  Country: US (occurrence: None)
  Receive Date: 20130226
  Receipt Date: 20130226
  Transmission Date: 20140127
  Serious: Yes (Hospitalization)
  Sender: FDA-Public Use
  Company Number: MPS1-1000606

PATIENT
  Age: 16 Year
  Sex: Female

DRUGS (8)
  1. ALDURAZYME [Suspect]
     Route: 042
     Dates: start: 2007
  2. TOPAMAX (TOPIRAMATE) [Concomitant]
  3. ADVIL (IBUPROFEN) [Concomitant]
  4. HYDROCODONE BITARTRATE AND ACETAMINOPHEN (HYDROCODONE BITARTRATE, PARACETAMOL) [Concomitant]
  5. CLONAZEPAM (CLONAZEPAM) (CLONAZEPAM) [Concomitant]
  6. GABAPENTIN (GABAPENTIN) [Concomitant]
  7. CLARITIN (LATANOPROST) [Concomitant]
  8. CELEXA (CITALOPRAM HYDROBROMIDE) [Concomitant]

REACTIONS (6)
  - Migraine [None]
  - Viral infection [None]
  - Pain [None]
  - Pyrexia [None]
  - Decreased appetite [None]
  - Movement disorder [None]
